FAERS Safety Report 8537281 (Version 3)
Quarter: 2012Q4

REPORT INFORMATION
  Report Type: 
  Country: US (occurrence: US)
  Receive Date: 20120430
  Receipt Date: 20121204
  Transmission Date: 20130627
  Serious: Yes (Hospitalization, Other)
  Sender: FDA-Public Use
  Company Number: US-US-EMD SERONO, INC.-7128335

PATIENT
  Sex: Female

DRUGS (3)
  1. REBIF [Suspect]
     Indication: MULTIPLE SCLEROSIS
     Route: 058
     Dates: start: 20081114
  2. INSULIN [Concomitant]
     Indication: DIABETES MELLITUS
  3. IBUPROFEN [Concomitant]
     Indication: PREMEDICATION

REACTIONS (8)
  - Breast cancer [Not Recovered/Not Resolved]
  - Pancreatitis [Unknown]
  - Gastrointestinal disorder [Unknown]
  - Blood glucose increased [Unknown]
  - Band sensation [Unknown]
  - Muscle spasticity [Not Recovered/Not Resolved]
  - Hypoaesthesia [Not Recovered/Not Resolved]
  - Injection site pain [Not Recovered/Not Resolved]
